FAERS Safety Report 6886774-9 (Version None)
Quarter: 2010Q3

REPORT INFORMATION
  Report Type: 
  Country: None (occurrence: None)
  Receive Date: 20100730
  Receipt Date: 20100721
  Transmission Date: 20110219
  Serious: Yes (Other)
  Sender: FDA-Public Use
  Company Number: US-PFIZER INC-2010079683

PATIENT
  Sex: Female

DRUGS (1)
  1. CELEBREX [Suspect]
     Dosage: UNK

REACTIONS (6)
  - ARTHRITIS [None]
  - DRUG INEFFECTIVE [None]
  - HIP ARTHROPLASTY [None]
  - JOINT SWELLING [None]
  - KNEE ARTHROPLASTY [None]
  - OEDEMA PERIPHERAL [None]
